FAERS Safety Report 10224779 (Version 1)
Quarter: 2014Q2

REPORT INFORMATION
  Report Type: Spontaneous
  Country: FR (occurrence: FR)
  Receive Date: 20140609
  Receipt Date: 20140609
  Transmission Date: 20141212
  Serious: Yes (Hospitalization)
  Sender: FDA-Public Use
  Company Number: FR-UCBSA-2014000245

PATIENT
  Age: 37 Year
  Sex: Male

DRUGS (10)
  1. KEPPRA [Suspect]
     Dosage: 500X2
     Route: 048
     Dates: start: 20140418, end: 20140425
  2. KEPPRA [Suspect]
     Dosage: UNK
     Route: 048
     Dates: start: 20140410, end: 20140417
  3. TRIFLUCAN [Suspect]
     Dosage: UNK
     Route: 048
     Dates: start: 20140419, end: 20140423
  4. LYRICA [Concomitant]
     Dosage: UNK
     Dates: start: 20140410
  5. URBANYL [Concomitant]
     Dosage: UNK
     Dates: start: 20140410
  6. MALOCIDE [Concomitant]
     Dosage: UNK
     Dates: start: 20140412
  7. ADIAZINE [Concomitant]
     Dosage: UNK
     Dates: start: 20140412
  8. TRUVADA [Concomitant]
     Dosage: UNK
     Dates: start: 20140419
  9. NORVIR [Concomitant]
     Dosage: UNK
     Dates: start: 20140419
  10. PREZISTA [Concomitant]
     Dosage: UNK
     Dates: start: 20140419

REACTIONS (2)
  - Rash maculo-papular [Recovered/Resolved]
  - Pruritus [Recovered/Resolved]
